FAERS Safety Report 9472872 (Version 1)
Quarter: 2013Q3

REPORT INFORMATION
  Report Type: Spontaneous
  Country: US (occurrence: US)
  Receive Date: 20130823
  Receipt Date: 20130823
  Transmission Date: 20140515
  Serious: No
  Sender: FDA-Public Use
  Company Number: US-PFIZER INC-2013240916

PATIENT
  Sex: Female

DRUGS (8)
  1. NORVASC [Suspect]
     Indication: HYPERTENSION
     Dosage: UNK
  2. INSULIN NPH [Concomitant]
     Dosage: UNK
  3. NOVOLOG [Concomitant]
     Dosage: UNK
  4. COUMADINE [Concomitant]
     Dosage: UNK
  5. TOPROL [Concomitant]
     Dosage: UNK
  6. LISINOPRIL [Concomitant]
     Dosage: UNK
  7. RYTHMOL [Concomitant]
     Dosage: UNK
  8. COMBIGAN [Concomitant]
     Indication: GLAUCOMA
     Dosage: UNK
     Route: 047

REACTIONS (7)
  - Limb injury [Not Recovered/Not Resolved]
  - Nerve injury [Unknown]
  - Musculoskeletal disorder [Unknown]
  - Gait disturbance [Unknown]
  - Neuralgia [Unknown]
  - Myalgia [Unknown]
  - Pain in extremity [Unknown]
